FAERS Safety Report 6662475-7 (Version None)
Quarter: 2010Q1

REPORT INFORMATION
  Report Type: 
  Country: None (occurrence: None)
  Receive Date: 20100331
  Receipt Date: 20100329
  Transmission Date: 20100710
  Serious: Yes (Hospitalization, Other)
  Sender: FDA-Public Use
  Company Number: US-MERCK-0909USA00958

PATIENT
  Age: 55 Year
  Sex: Male

DRUGS (9)
  1. FOSAMAX [Suspect]
     Indication: OSTEOPOROSIS
     Route: 048
     Dates: start: 19990901, end: 20080201
  2. FOSAMAX [Suspect]
     Route: 048
     Dates: start: 20001001
  3. FOSAMAX [Suspect]
     Route: 048
     Dates: start: 20040501
  4. FOSAMAX [Suspect]
     Indication: RHEUMATOID ARTHRITIS
     Route: 048
     Dates: start: 19990901, end: 20080201
  5. FOSAMAX [Suspect]
     Route: 048
     Dates: start: 20001001
  6. FOSAMAX [Suspect]
     Route: 048
     Dates: start: 20040501
  7. PREDNISONE [Concomitant]
     Indication: ARTHRITIS
     Route: 065
     Dates: start: 19870101, end: 20070101
  8. PREDNISONE [Concomitant]
     Indication: RHEUMATOID ARTHRITIS
     Route: 065
     Dates: start: 19870101, end: 20070101
  9. METHOTREXATE [Concomitant]
     Indication: RHEUMATOID ARTHRITIS
     Route: 065

REACTIONS (43)
  - ABDOMINAL PAIN UPPER [None]
  - ADVERSE EVENT [None]
  - ANKLE FRACTURE [None]
  - ARTHRALGIA [None]
  - ARTHROPATHY [None]
  - BACK PAIN [None]
  - BIPOLAR DISORDER [None]
  - BONE DENSITY DECREASED [None]
  - CHOLECYSTITIS CHRONIC [None]
  - COMPRESSION FRACTURE [None]
  - CONTUSION [None]
  - COSTOCHONDRITIS [None]
  - DEEP VEIN THROMBOSIS [None]
  - DENTAL CARIES [None]
  - DIABETES MELLITUS [None]
  - DIARRHOEA [None]
  - DIZZINESS [None]
  - ERECTILE DYSFUNCTION [None]
  - EXOSTOSIS [None]
  - FALL [None]
  - GINGIVAL DISORDER [None]
  - GINGIVAL INFECTION [None]
  - HYPERTENSION [None]
  - INFECTION [None]
  - INTERNATIONAL NORMALISED RATIO INCREASED [None]
  - LOOSE TOOTH [None]
  - LYMPHADENOPATHY [None]
  - OEDEMA PERIPHERAL [None]
  - OSTEOARTHRITIS [None]
  - OSTEONECROSIS [None]
  - OSTEOPENIA [None]
  - PERIODONTITIS [None]
  - POST-TRAUMATIC STRESS DISORDER [None]
  - PSORIASIS [None]
  - PSORIATIC ARTHROPATHY [None]
  - SPINAL OSTEOARTHRITIS [None]
  - TOOTH ABSCESS [None]
  - TOOTH DISORDER [None]
  - TREATMENT NONCOMPLIANCE [None]
  - UPPER RESPIRATORY TRACT INFECTION [None]
  - VOMITING [None]
  - WHITE BLOOD CELL COUNT DECREASED [None]
  - WRONG TECHNIQUE IN DRUG USAGE PROCESS [None]
